FAERS Safety Report 4282725-4 (Version None)
Quarter: 2004Q1

REPORT INFORMATION
  Report Type: 
  Country: None (occurrence: None)
  Receive Date: 20040130
  Receipt Date: 20030411
  Transmission Date: 20041129
  Serious: No
  Sender: FDA-Public Use
  Company Number: US-BRISTOL-MYERS SQUIBB COMPANY-12238267

PATIENT
  Age: 58 Year
  Sex: Female
  Weight: 82 kg

DRUGS (5)
  1. SERZONE [Suspect]
     Indication: DEPRESSION
     Dosage: 3-200MG TABLETS QD. STOPPED BETWEEN JAN + SEP-2002
     Route: 048
     Dates: start: 19950101, end: 20020101
  2. WELLBUTRIN [Concomitant]
     Dosage: PRESENT DOSE. DOSE WAS LESS WHEN ON SERZONE.
  3. ESTRADIOL [Concomitant]
     Indication: OESTROGEN THERAPY
  4. MULTIVITAMIN [Concomitant]
  5. VITAMIN E [Concomitant]

REACTIONS (3)
  - ALOPECIA [None]
  - FATIGUE [None]
  - VISUAL DISTURBANCE [None]
